FAERS Safety Report 8933299 (Version 1)
Quarter: 2012Q4

REPORT INFORMATION
  Report Type: 
  Country: US (occurrence: US)
  Receive Date: 20121129
  Receipt Date: 20121129
  Transmission Date: 20130627
  Serious: Yes (Other)
  Sender: FDA-Public Use
  Company Number: US-JNJFOC-20121111361

PATIENT
  Sex: Male

DRUGS (5)
  1. LEVAQUIN [Suspect]
     Indication: SINUSITIS
     Route: 048
     Dates: start: 2006
  2. LEVAQUIN [Suspect]
     Indication: BACTERIAL INFECTION
     Route: 048
     Dates: start: 2006
  3. PLAVIX [Concomitant]
     Indication: ANTICOAGULANT THERAPY
     Route: 065
  4. METOPROLOL [Concomitant]
     Indication: HYPERTENSION
     Route: 065
  5. AMBIEN [Concomitant]
     Indication: SLEEP DISORDER THERAPY
     Route: 065

REACTIONS (3)
  - Rotator cuff syndrome [Unknown]
  - Tendon rupture [Unknown]
  - Rotator cuff syndrome [Unknown]
